FAERS Safety Report 15969760 (Version 2)
Quarter: 2020Q1

REPORT INFORMATION
  Report Type: Report from Study
  Country: US (occurrence: US)
  Receive Date: 20190215
  Receipt Date: 20200320
  Transmission Date: 20200409
  Serious: Yes (Other)
  Sender: FDA-Public Use
  Company Number: US-NOVOPROD-646400

PATIENT
  Sex: Male

DRUGS (1)
  1. VICTOZA [Suspect]
     Active Substance: LIRAGLUTIDE
     Indication: DIABETES MELLITUS
     Dosage: 1.8 MG, QD
     Route: 058
     Dates: start: 2018, end: 20190131

REACTIONS (1)
  - Infusion [Recovering/Resolving]

NARRATIVE: CASE EVENT DATE: 20190207
